FAERS Safety Report 9509638 (Version 2)
Quarter: 2013Q3

REPORT INFORMATION
  Report Type: Spontaneous
  Country: US (occurrence: US)
  Receive Date: 20130909
  Receipt Date: 20130909
  Transmission Date: 20140515
  Serious: No
  Sender: FDA-Public Use
  Company Number: US-BRISTOL-MYERS SQUIBB COMPANY-18906099

PATIENT
  Sex: Female

DRUGS (3)
  1. ABILIFY [Suspect]
  2. ZOLOFT [Suspect]
  3. RISPERIDONE [Suspect]
     Indication: DEPRESSION
     Dates: start: 20130422

REACTIONS (4)
  - Drug ineffective [Unknown]
  - Blood cholesterol increased [Unknown]
  - Asthenia [Unknown]
  - Depression [Unknown]
